FAERS Safety Report 7726486-2 (Version None)
Quarter: 2011Q3

REPORT INFORMATION
  Report Type: 
  Country: None (occurrence: None)
  Receive Date: 20110902
  Receipt Date: 20110819
  Transmission Date: 20111222
  Serious: Yes (Other)
  Sender: FDA-Public Use
  Company Number: PHHY2011DE56986

PATIENT
  Sex: Female

DRUGS (2)
  1. AMITRIPTYLINE HCL [Concomitant]
     Indication: DEPRESSION
  2. FEMARA [Suspect]
     Indication: BREAST CANCER
     Dosage: 2.5 MG
     Route: 048
     Dates: start: 20100101

REACTIONS (6)
  - VASCULITIS [None]
  - FUNGAL INFECTION [None]
  - LEUKOCYTOCLASTIC VASCULITIS [None]
  - ECZEMA ASTEATOTIC [None]
  - DERMATITIS CONTACT [None]
  - SKIN EXFOLIATION [None]
